FAERS Safety Report 5623567-4 (Version None)
Quarter: 2008Q1

REPORT INFORMATION
  Report Type: 
  Country: None (occurrence: None)
  Receive Date: 20080212
  Receipt Date: 20080201
  Transmission Date: 20080703
  Serious: Yes (Hospitalization)
  Sender: FDA-Public Use
  Company Number: US-ELI_LILLY_AND_COMPANY-US200802000182

PATIENT
  Sex: Male

DRUGS (6)
  1. PROZAC [Suspect]
     Dates: start: 19960101, end: 20071201
  2. PROZAC [Suspect]
     Dates: start: 20071201, end: 20080101
  3. PROZAC [Suspect]
     Dates: start: 20080101
  4. FLUOXETINE HYDROCHLORIDE [Concomitant]
     Dates: start: 20071201, end: 20071201
  5. FLUOXETINE HYDROCHLORIDE [Concomitant]
     Dosage: 80 MG, UNK
     Dates: start: 20080101, end: 20080101
  6. FLUOXETINE HYDROCHLORIDE [Concomitant]
     Dosage: 60 MG, UNK
     Dates: start: 20080101, end: 20080101

REACTIONS (2)
  - CARDIAC VALVE DISEASE [None]
  - POST-TRAUMATIC STRESS DISORDER [None]
